FAERS Safety Report 4461175-1 (Version None)
Quarter: 2004Q3

REPORT INFORMATION
  Report Type: 
  Country: None (occurrence: None)
  Receive Date: 20040923
  Receipt Date: 20040923
  Transmission Date: 20050211
  Serious: No
  Sender: FDA-Public Use
  Company Number: None

PATIENT
  Sex: Male
  Weight: 88.6 kg

DRUGS (3)
  1. FLUDARABINE PHOSPHATE [Suspect]
     Dosage: 60MG IV QD X5 DOSES
     Route: 042
     Dates: start: 20040330, end: 20040921
  2. BUSULFAN 70MG IV Q6H X 8 DOSES [Suspect]
     Dosage: 70MG IV Q6H X 8 DOSES
     Route: 042
     Dates: start: 20040330, end: 20040921
  3. AT G 200MG IV QD X 4 DOSES [Suspect]
     Dosage: 200MG IV QD X 4 DOSES
     Route: 042
     Dates: start: 20040330, end: 20040921

REACTIONS (6)
  - ANOREXIA [None]
  - CYTOMEGALOVIRUS COLITIS [None]
  - FOOD AVERSION [None]
  - GASTROINTESTINAL PAIN [None]
  - GRAFT VERSUS HOST DISEASE [None]
  - WEIGHT DECREASED [None]
